FAERS Safety Report 7259589-X (Version None)
Quarter: 2011Q1

REPORT INFORMATION
  Report Type: 
  Country: None (occurrence: None)
  Receive Date: 20110130
  Receipt Date: 20101202
  Transmission Date: 20110831
  Serious: No
  Sender: FDA-Public Use
  Company Number: PR-ABBOTT-10P-131-0682277-00

PATIENT
  Sex: Female

DRUGS (3)
  1. HUMIRA [Suspect]
     Indication: PSORIASIS
     Route: 058
     Dates: end: 20101001
  2. VERAPAMIL [Concomitant]
     Indication: ARRHYTHMIA PROPHYLAXIS
  3. SORIATANE [Concomitant]
     Indication: PSORIASIS
     Route: 048

REACTIONS (1)
  - DRUG INEFFECTIVE [None]
